FAERS Safety Report 6284151-5 (Version None)
Quarter: 2009Q3

REPORT INFORMATION
  Report Type: 
  Country: None (occurrence: None)
  Receive Date: 20090717
  Receipt Date: 20090709
  Transmission Date: 20100115
  Serious: Yes (Death)
  Sender: FDA-Public Use
  Company Number: SPV1-2009-01359

PATIENT
  Age: 56 Year
  Sex: Male

DRUGS (12)
  1. FOSRENOL [Suspect]
     Indication: HYPERPHOSPHATAEMIA
     Dosage: ORAL
     Route: 048
     Dates: start: 20090528, end: 20090620
  2. CALTAN (CALCIUM CARBONATE) [Concomitant]
  3. RENAGE(SEVELAMER) [Concomitant]
  4. ALCADOL (ALFACALCIDOL) [Concomitant]
  5. NEUFAN (ALLOPURINOL) [Concomitant]
  6. LASIX [Concomitant]
  7. ADALAT CC [Concomitant]
  8. BASEN (VOGLIBOSE) [Concomitant]
  9. LANSOPRAZOLE [Concomitant]
  10. ELCITONIN (ELCATONIN) [Concomitant]
  11. NEUROTROPIN (SMALLPOX VACCINE) [Concomitant]
  12. .. [Concomitant]

REACTIONS (1)
  - C-REACTIVE PROTEIN INCREASED [None]
